FAERS Safety Report 6130877-3 (Version None)
Quarter: 2009Q1

REPORT INFORMATION
  Report Type: 
  Country: None (occurrence: None)
  Receive Date: 20090323
  Receipt Date: 20090311
  Transmission Date: 20090719
  Serious: Yes (Hospitalization)
  Sender: FDA-Public Use
  Company Number: 1000003730

PATIENT
  Age: 15 Year
  Sex: Male
  Weight: 57 kg

DRUGS (2)
  1. ESCITALOPRAM [Suspect]
     Indication: DEPRESSION
     Dosage: 5-20 MG/DAY, ORAL
     Route: 048
     Dates: start: 20080701, end: 20080731
  2. ESCITALOPRAM [Suspect]
     Indication: DEPRESSION
     Dosage: 20 MG (20 MG 1 IN 1 D), ORAL
     Route: 048
     Dates: start: 20080801, end: 20090108

REACTIONS (3)
  - BLOOD INSULIN DECREASED [None]
  - DIABETES MELLITUS [None]
  - WEIGHT DECREASED [None]
